FAERS Safety Report 21237669 (Version 1)
Quarter: 2022Q3

REPORT INFORMATION
  Report Type: Spontaneous
  Country: US (occurrence: US)
  Receive Date: 20220822
  Receipt Date: 20220822
  Transmission Date: 20221027
  Serious: Yes (Other)
  Sender: FDA-Public Use
  Company Number: US-SA-SAC20220817002248

PATIENT
  Age: 51 Year

DRUGS (1)
  1. ZANTAC [Suspect]
     Active Substance: RANITIDINE HYDROCHLORIDE
     Indication: Abdominal discomfort
     Dosage: DOSE- UNKNOWN AT THIS TIME, FREQUENCY- OTHER
     Route: 065
     Dates: start: 198001, end: 201212

REACTIONS (2)
  - Colorectal cancer [Unknown]
  - Breast cancer stage III [Unknown]

NARRATIVE: CASE EVENT DATE: 20090101
